FAERS Safety Report 9136594 (Version 1)
Quarter: 2013Q1

REPORT INFORMATION
  Report Type: Spontaneous
  Country: US (occurrence: US)
  Receive Date: 20130304
  Receipt Date: 20130304
  Transmission Date: 20140127
  Serious: No
  Sender: FDA-Public Use
  Company Number: US-ABBOTT-12P-163-0965131-00

PATIENT
  Age: 64 None
  Sex: Male
  Weight: 149.82 kg

DRUGS (7)
  1. ANDROGEL 1% [Suspect]
     Indication: BLOOD TESTOSTERONE DECREASED
     Route: 061
     Dates: start: 20120615, end: 20120728
  2. ANDROGEL 1% [Suspect]
     Dates: start: 20120730
  3. GLIPIZIDE [Concomitant]
     Indication: DIABETES MELLITUS
  4. LISINOPRIL [Concomitant]
     Indication: HYPERTENSION
  5. LORTAB [Concomitant]
     Indication: PAIN
  6. CRESTOR [Concomitant]
     Indication: BLOOD CHOLESTEROL INCREASED
  7. METFORMIN [Concomitant]
     Indication: DIABETES MELLITUS

REACTIONS (2)
  - Drug dose omission [Not Recovered/Not Resolved]
  - Skin odour abnormal [Not Recovered/Not Resolved]
